FAERS Safety Report 11629933 (Version 1)
Quarter: 2015Q4

REPORT INFORMATION
  Report Type: Spontaneous
  Country: US (occurrence: US)
  Receive Date: 20151014
  Receipt Date: 20151014
  Transmission Date: 20160304
  Serious: Yes (Hospitalization, Other)
  Sender: FDA-Public Use
  Company Number: US-TAKEDA-2015MPI006682

PATIENT
  Age: 63 Year
  Sex: Male
  Weight: 92.63 kg

DRUGS (5)
  1. REVLIMID [Concomitant]
     Active Substance: LENALIDOMIDE
     Dosage: UNK
  2. VELCADE [Suspect]
     Active Substance: BORTEZOMIB
     Dosage: 1.3 MG/M2, 2/WEEK
     Route: 058
     Dates: start: 201412
  3. GABAPENTIN. [Concomitant]
     Active Substance: GABAPENTIN
     Indication: PAIN
     Dosage: UNK
  4. VELCADE [Suspect]
     Active Substance: BORTEZOMIB
     Indication: PLASMA CELL MYELOMA
     Dosage: 1.3 MG/M2, 2/WEEK
     Route: 058
     Dates: start: 20140116, end: 201404
  5. 5-FU                               /00098801/ [Concomitant]
     Active Substance: FLUOROURACIL
     Indication: SKIN CANCER
     Dosage: UNK

REACTIONS (2)
  - Orthostatic hypotension [Recovered/Resolved]
  - Skin cancer [Unknown]

NARRATIVE: CASE EVENT DATE: 201401
